FAERS Safety Report 18281883 (Version 1)
Quarter: 2020Q3

REPORT INFORMATION
  Report Type: Spontaneous
  Country: US (occurrence: TR)
  Receive Date: 20200918
  Receipt Date: 20200918
  Transmission Date: 20201103
  Serious: Yes (Other)
  Sender: FDA-Public Use
  Company Number: US-BAYER-2020-190284

PATIENT
  Sex: Female

DRUGS (9)
  1. BIOGENERICS PYRAZINAMIDE [Suspect]
     Active Substance: PYRAZINAMIDE
     Indication: DISSEMINATED TUBERCULOSIS
     Dosage: 2000 MG
     Route: 065
  2. CYCLOSERINE. [Suspect]
     Active Substance: CYCLOSERINE
     Indication: DISSEMINATED TUBERCULOSIS
     Dosage: 750 MG
     Route: 065
  3. ETHAMBUTOL [Suspect]
     Active Substance: ETHAMBUTOL HYDROCHLORIDE
     Indication: DISSEMINATED TUBERCULOSIS
     Dosage: 1500 MG
     Route: 065
  4. ETHIONAMIDE [Suspect]
     Active Substance: ETHIONAMIDE
     Indication: DISSEMINATED TUBERCULOSIS
     Dosage: 750 MG
     Route: 065
  5. METHYLPREDNISOLONE. [Suspect]
     Active Substance: METHYLPREDNISOLONE
     Indication: DISSEMINATED TUBERCULOSIS
     Route: 065
  6. AMIKACIN. [Suspect]
     Active Substance: AMIKACIN
     Indication: DISSEMINATED TUBERCULOSIS
     Dosage: 1 G, QH
     Route: 065
  7. AVELOX [Suspect]
     Active Substance: MOXIFLOXACIN HYDROCHLORIDE
     Indication: DISSEMINATED TUBERCULOSIS
     Dosage: 400 MG
     Route: 065
  8. 4?AMINOSALICYLIC ACID [Suspect]
     Active Substance: AMINOSALICYLIC ACID
     Indication: DISSEMINATED TUBERCULOSIS
     Dosage: 9 G
     Route: 065
  9. 4?AMINOSALICYLIC ACID [Suspect]
     Active Substance: AMINOSALICYLIC ACID
     Indication: DISSEMINATED TUBERCULOSIS
     Dosage: 8 G
     Route: 065

REACTIONS (5)
  - Altered state of consciousness [Not Recovered/Not Resolved]
  - Rash pruritic [Not Recovered/Not Resolved]
  - General physical health deterioration [Not Recovered/Not Resolved]
  - Muscle contractions involuntary [Not Recovered/Not Resolved]
  - Product use in unapproved indication [Not Recovered/Not Resolved]
